FAERS Safety Report 6578798-6 (Version None)
Quarter: 2010Q1

REPORT INFORMATION
  Report Type: 
  Country: None (occurrence: None)
  Receive Date: 20100202
  Receipt Date: 20100118
  Transmission Date: 20100710
  Serious: Yes (Death)
  Sender: FDA-Public Use
  Company Number: 2010S1000056

PATIENT
  Age: 63 Year
  Sex: Male

DRUGS (13)
  1. ROXICODONE [Suspect]
     Dosage: ; PO
     Route: 048
     Dates: end: 20080101
  2. AMITRIPTYLINE HCL [Suspect]
     Dosage: ; PO
     Route: 048
     Dates: end: 20080101
  3. PROMETHAZINE [Suspect]
     Dosage: ; PO
     Route: 048
     Dates: end: 20080101
  4. MIRTAZAPINE [Suspect]
     Dosage: ; PO
     Route: 048
     Dates: end: 20080101
  5. CLONAZEPAM [Suspect]
     Dosage: ; PO
     Route: 048
     Dates: end: 20080101
  6. ATENOLOL [Suspect]
     Dosage: ; PO
     Route: 048
     Dates: end: 20080101
  7. PRAZOSIN HYDROCHLORIDE [Suspect]
     Dosage: ; PO
     Route: 048
     Dates: end: 20080101
  8. TRAZODONE HCL [Suspect]
     Dosage: ; PO
     Route: 048
     Dates: end: 20080101
  9. NIACIN [Suspect]
     Dosage: ; PO
     Route: 048
     Dates: end: 20080101
  10. PREVACHOL [Suspect]
     Dosage: ; PO
     Route: 048
     Dates: end: 20080101
  11. GABAPENTIN [Suspect]
     Dosage: ; PO
     Route: 048
     Dates: end: 20080101
  12. DRUG UNKNOWN [Suspect]
     Dosage: ; PO
     Route: 048
     Dates: end: 20080101
  13. VENLAFAXINE [Suspect]
     Dosage: ; PO
     Route: 048
     Dates: end: 20080101

REACTIONS (3)
  - CARDIAC ARREST [None]
  - COMPLETED SUICIDE [None]
  - RESPIRATORY ARREST [None]
